FAERS Safety Report 13089282 (Version 1)
Quarter: 2017Q1

REPORT INFORMATION
  Report Type: Spontaneous
  Country: FR (occurrence: FR)
  Receive Date: 20170105
  Receipt Date: 20170105
  Transmission Date: 20170428
  Serious: Yes (Hospitalization)
  Sender: FDA-Public Use
  Company Number: FR-JNJFOC-20170101923

PATIENT
  Age: 64 Year
  Sex: Male

DRUGS (4)
  1. HALDOL [Suspect]
     Active Substance: HALOPERIDOL
     Indication: PSYCHOTIC DISORDER
     Route: 048
  2. HALDOL [Suspect]
     Active Substance: HALOPERIDOL
     Indication: PSYCHOTIC DISORDER
     Route: 048
  3. LOXAPAC [Suspect]
     Active Substance: LOXAPINE SUCCINATE
     Indication: PSYCHOTIC DISORDER
     Route: 065
  4. LOXAPAC [Suspect]
     Active Substance: LOXAPINE SUCCINATE
     Indication: PSYCHOTIC DISORDER
     Route: 065

REACTIONS (1)
  - Parkinsonism [Recovering/Resolving]

NARRATIVE: CASE EVENT DATE: 20150202
